FAERS Safety Report 20385209 (Version 1)
Quarter: 2022Q1

REPORT INFORMATION
  Report Type: Report from Study
  Country: BE (occurrence: BE)
  Receive Date: 20220127
  Receipt Date: 20220127
  Transmission Date: 20220423
  Serious: Yes (Hospitalization)
  Sender: FDA-Public Use
  Company Number: BE-DAIICHI SANKYO (CHINA) HOLDINGS CO., LTD.-DSU-2019-120103

PATIENT
  Age: 61 Year
  Sex: Female
  Weight: 82 kg

DRUGS (35)
  1. TRASTUZUMAB DERUXTECAN [Suspect]
     Active Substance: TRASTUZUMAB DERUXTECAN
     Indication: HER2 positive breast cancer
     Dosage: 5.4 MG/KG, ONCE EVERY 3 WK
     Route: 042
     Dates: start: 20180704, end: 20180704
  2. TRASTUZUMAB DERUXTECAN [Suspect]
     Active Substance: TRASTUZUMAB DERUXTECAN
     Indication: Breast cancer metastatic
     Dosage: 5.4 MG/KG, ONCE EVERY 3 WK
     Route: 042
     Dates: start: 20180725, end: 20180725
  3. TRASTUZUMAB DERUXTECAN [Suspect]
     Active Substance: TRASTUZUMAB DERUXTECAN
     Dosage: 5.4 MG/KG, ONCE EVERY 3 WK
     Route: 042
     Dates: start: 20180816, end: 20180816
  4. TRASTUZUMAB DERUXTECAN [Suspect]
     Active Substance: TRASTUZUMAB DERUXTECAN
     Dosage: 5.4 MG/KG, ONCE EVERY 3 WK
     Route: 042
     Dates: start: 20180905, end: 20180905
  5. TRASTUZUMAB DERUXTECAN [Suspect]
     Active Substance: TRASTUZUMAB DERUXTECAN
     Dosage: 5.4 MG/KG, ONCE EVERY 3 WK
     Route: 042
     Dates: start: 20180926, end: 20180926
  6. TRASTUZUMAB DERUXTECAN [Suspect]
     Active Substance: TRASTUZUMAB DERUXTECAN
     Dosage: 5.4 MG/KG, ONCE EVERY 3 WK
     Route: 042
     Dates: start: 20181017, end: 20181017
  7. TRASTUZUMAB DERUXTECAN [Suspect]
     Active Substance: TRASTUZUMAB DERUXTECAN
     Dosage: 5.4 MG/KG, ONCE EVERY 3 WK
     Route: 042
     Dates: start: 20181107, end: 20181107
  8. TRASTUZUMAB DERUXTECAN [Suspect]
     Active Substance: TRASTUZUMAB DERUXTECAN
     Dosage: 5.4 MG/KG, ONCE EVERY 3 WK
     Route: 042
     Dates: start: 20181205, end: 20181205
  9. TRASTUZUMAB DERUXTECAN [Suspect]
     Active Substance: TRASTUZUMAB DERUXTECAN
     Dosage: 4.4 MG/KG, ONCE EVERY 3 WK
     Route: 042
     Dates: start: 20190102, end: 20190102
  10. TRASTUZUMAB DERUXTECAN [Suspect]
     Active Substance: TRASTUZUMAB DERUXTECAN
     Dosage: 4.4 MG/KG, ONCE EVERY 3 WK
     Route: 042
     Dates: start: 20190123, end: 20190123
  11. TRASTUZUMAB DERUXTECAN [Suspect]
     Active Substance: TRASTUZUMAB DERUXTECAN
     Dosage: 4.4 MG/KG, ONCE EVERY 3 WK
     Route: 042
     Dates: start: 20190206, end: 20190206
  12. TRASTUZUMAB DERUXTECAN [Suspect]
     Active Substance: TRASTUZUMAB DERUXTECAN
     Dosage: 4.4 MG/KG, ONCE EVERY 3 WK
     Route: 042
     Dates: start: 20190227, end: 20190227
  13. TRASTUZUMAB DERUXTECAN [Suspect]
     Active Substance: TRASTUZUMAB DERUXTECAN
     Dosage: 4.4 MG/KG, ONCE EVERY 3 WK
     Route: 042
     Dates: start: 20190320, end: 20190320
  14. TRASTUZUMAB DERUXTECAN [Suspect]
     Active Substance: TRASTUZUMAB DERUXTECAN
     Dosage: 4.4 MG/KG, ONCE EVERY 3 WK
     Route: 042
     Dates: start: 20190410, end: 20190410
  15. TRASTUZUMAB DERUXTECAN [Suspect]
     Active Substance: TRASTUZUMAB DERUXTECAN
     Dosage: 4.4 MG/KG, ONCE EVERY 3 WK
     Route: 042
     Dates: start: 20190430, end: 20190430
  16. TRASTUZUMAB DERUXTECAN [Suspect]
     Active Substance: TRASTUZUMAB DERUXTECAN
     Dosage: 4.4 MG/KG, ONCE EVERY 3 WK
     Route: 042
     Dates: start: 20190522, end: 20190522
  17. TRASTUZUMAB DERUXTECAN [Suspect]
     Active Substance: TRASTUZUMAB DERUXTECAN
     Dosage: 4.4 MG/KG, ONCE EVERY 3 WK
     Route: 042
     Dates: start: 20190619, end: 20190619
  18. CALCIUM CARBONATE\VITAMIN D [Concomitant]
     Active Substance: CALCIUM CARBONATE\VITAMIN D
     Indication: Prophylaxis
     Dosage: 1 DF, QD
     Route: 048
  19. NADROPARIN CALCIUM [Concomitant]
     Active Substance: NADROPARIN CALCIUM
     Indication: Prophylaxis
     Dosage: 0.8 ML, QD
     Route: 058
     Dates: end: 20190522
  20. NADROPARIN CALCIUM [Concomitant]
     Active Substance: NADROPARIN CALCIUM
     Dosage: 0.6 ML, QD
     Route: 058
     Dates: start: 20190523, end: 20190703
  21. INDERAL [Concomitant]
     Active Substance: PROPRANOLOL HYDROCHLORIDE
     Indication: Hypertension
     Dosage: 40 MG, QD
     Route: 048
     Dates: start: 20190430
  22. INDERAL [Concomitant]
     Active Substance: PROPRANOLOL HYDROCHLORIDE
     Dosage: 40 MG, BID
     Route: 048
     Dates: end: 20190430
  23. OMEPRAZOL                          /00661201/ [Concomitant]
     Indication: Chronic gastritis
     Dosage: 40 MG, QD
     Route: 048
     Dates: start: 20150626
  24. XGEVA [Concomitant]
     Active Substance: DENOSUMAB
     Indication: Prophylaxis
     Dosage: 120 MG, ONCE EVERY 1 MO
     Route: 058
  25. ANTIMETIL [Concomitant]
     Indication: Vomiting
     Dosage: 1 DF, PRN
     Route: 048
     Dates: start: 20181108
  26. LIPIKAR                            /02826001/ [Concomitant]
     Indication: Skin lesion
     Dosage: 1 APPLICATION, QD
     Route: 061
     Dates: start: 20181120
  27. UNSPECIFIED INGREDIENT [Concomitant]
     Active Substance: UNSPECIFIED INGREDIENT
     Indication: Dry skin
     Dosage: UNK, QD
     Route: 062
     Dates: start: 20180725
  28. FLUDROCORTISONE ACETATE\LIDOCAINE HYDROCHLORIDE\NEOMYCIN SULFATE\POLYM [Concomitant]
     Active Substance: FLUDROCORTISONE ACETATE\LIDOCAINE HYDROCHLORIDE\NEOMYCIN SULFATE\POLYMYXIN B SULFATE
     Indication: Mucosal inflammation
     Dosage: 1 APPLICATION, QD
     Route: 061
     Dates: start: 20181108
  29. EFFEXOR [Concomitant]
     Active Substance: VENLAFAXINE HYDROCHLORIDE
     Indication: Depression
     Dosage: 75 MG, QD
     Route: 048
  30. L-THYROXIN                         /00068001/ [Concomitant]
     Indication: Thyroidectomy
     Dosage: 25 UG, QD
     Route: 048
  31. MAGNESIUM [Concomitant]
     Active Substance: MAGNESIUM
     Indication: Muscle spasms
     Dosage: 1 CAPSULE, QD
     Route: 048
  32. INSULIN ASPART [Concomitant]
     Active Substance: INSULIN ASPART
     Indication: Hyperglycaemia
     Dosage: 12 MORNING + 8 EVENING, BID
     Route: 058
     Dates: end: 20190704
  33. INSULIN ASPART [Concomitant]
     Active Substance: INSULIN ASPART
     Indication: Diabetes mellitus
  34. TEMESTA                            /00273201/ [Concomitant]
     Indication: Insomnia
     Dosage: 1 MG, QD
     Route: 048
  35. PRIMPERAN [Concomitant]
     Active Substance: METOCLOPRAMIDE HYDROCHLORIDE
     Indication: Nausea
     Dosage: 10 MG, AS NEEDED
     Route: 048
     Dates: start: 20180705

REACTIONS (1)
  - Blood bilirubin increased [Recovered/Resolved]

NARRATIVE: CASE EVENT DATE: 20190529
